FAERS Safety Report 9928304 (Version 1)
Quarter: 2014Q1

REPORT INFORMATION
  Report Type: Spontaneous
  Country: US (occurrence: None)
  Receive Date: 20140226
  Receipt Date: 20140226
  Transmission Date: 20141002
  Serious: Yes (Life-Threatening)
  Sender: FDA-Public Use
  Company Number: None

PATIENT
  Age: 43 Year
  Sex: Female
  Weight: 88.91 kg

DRUGS (1)
  1. METHADONE 10 MG [Suspect]
     Indication: BACK PAIN
     Route: 048

REACTIONS (3)
  - Scoliosis [None]
  - Condition aggravated [None]
  - Narcolepsy [None]
